FAERS Safety Report 9026218 (Version 1)
Quarter: 2013Q1

REPORT INFORMATION
  Report Type: Spontaneous
  Country: US (occurrence: None)
  Receive Date: 20130108
  Receipt Date: 20130108
  Transmission Date: 20140127
  Serious: Yes (Hospitalization)
  Sender: FDA-Public Use
  Company Number: 2012-01911

PATIENT
  Age: 67 Year
  Sex: Female
  Weight: 93 kg

DRUGS (17)
  1. CEFTRIAXONE [Suspect]
     Indication: URINARY TRACT INFECTION
     Route: 030
  2. WARFARIN [Suspect]
     Indication: ANTICOAGULANT THERAPY
     Dates: start: 2002
  3. PIOGLITAZONE [Concomitant]
  4. ALBUTEROL [Concomitant]
  5. CITALOPRAM [Concomitant]
  6. FUROSEMIDE [Concomitant]
  7. GEMFIBROZIL [Concomitant]
  8. IPRATROPIUM-ALBUTEROL [Concomitant]
  9. LEVOTHYROXINE SODIUM [Concomitant]
  10. METFORMIN [Concomitant]
  11. METOCLOPRAMIDE [Concomitant]
  12. OMEPRAZOLE [Concomitant]
  13. POTASSIUM CHLORIDE [Concomitant]
  14. SIMVASTATIN [Concomitant]
  15. SOTALOL HYDROCHLORIDE [Concomitant]
  16. PHENAZOPYRIDINE [Concomitant]
  17. CEFUROXIME AXETIL [Concomitant]

REACTIONS (4)
  - Drug interaction [None]
  - International normalised ratio increased [None]
  - International normalised ratio decreased [None]
  - Urinary tract infection [None]
